FAERS Safety Report 24450208 (Version 1)
Quarter: 2024Q4

REPORT INFORMATION
  Report Type: Spontaneous
  Country: AE (occurrence: AE)
  Receive Date: 20241017
  Receipt Date: 20241017
  Transmission Date: 20250115
  Serious: Yes (Other)
  Sender: PFIZER
  Company Number: AE-PFIZER INC-PV202400134958

PATIENT

DRUGS (2)
  1. LORBRENA [Suspect]
     Active Substance: LORLATINIB
     Indication: Lung cancer metastatic
     Dosage: 100 MG
  2. LORBRENA [Suspect]
     Active Substance: LORLATINIB
     Dosage: 75 MG

REACTIONS (1)
  - Hallucination [Unknown]
